FAERS Safety Report 13660187 (Version 1)
Quarter: 2017Q2

REPORT INFORMATION
  Report Type: Spontaneous
  Country: US (occurrence: US)
  Receive Date: 20170616
  Receipt Date: 20170616
  Transmission Date: 20170830
  Serious: No
  Sender: FDA-Public Use
  Company Number: US-LEXICON PHARMACEUTICALS, INC-17-1606-00310

PATIENT
  Sex: Male

DRUGS (11)
  1. AMLODIPINE [Concomitant]
     Active Substance: AMLODIPINE BESYLATE
  2. HYDROCHLOROITHIAZIDE [Concomitant]
  3. SANDOSTATIN [Concomitant]
     Active Substance: OCTREOTIDE ACETATE
  4. SOMATULINE [Concomitant]
     Active Substance: LANREOTIDE ACETATE
  5. TELOTRISTAT ETHYL [Suspect]
     Active Substance: TELOTRISTAT ETHYL
     Indication: CARCINOID TUMOUR OF THE SMALL BOWEL
     Route: 048
     Dates: start: 20170426
  6. ACETAMIN [Concomitant]
     Active Substance: ACETAMINOPHEN
  7. DIPHENHYDRAMINE. [Concomitant]
     Active Substance: DIPHENHYDRAMINE
  8. MULTIVITAMIN [Concomitant]
     Active Substance: VITAMINS
  9. PROBIOTIC FORMULA [Concomitant]
  10. AFINITOR [Concomitant]
     Active Substance: EVEROLIMUS
  11. OPIUM. [Concomitant]
     Active Substance: OPIUM

REACTIONS (2)
  - Gastrooesophageal reflux disease [Unknown]
  - No adverse event [Unknown]

NARRATIVE: CASE EVENT DATE: 2017
